FAERS Safety Report 6040752-0 (Version None)
Quarter: 2009Q1

REPORT INFORMATION
  Report Type: 
  Country: None (occurrence: None)
  Receive Date: 20090116
  Receipt Date: 20081006
  Transmission Date: 20090719
  Serious: No
  Sender: FDA-Public Use
  Company Number: US-BRISTOL-MYERS SQUIBB COMPANY-14197552

PATIENT
  Age: 54 Year
  Sex: Female
  Weight: 73 kg

DRUGS (3)
  1. ABILIFY [Suspect]
     Indication: DEPRESSION
     Dates: start: 20060101
  2. GLUCOPHAGE [Concomitant]
  3. DEPAKOTE [Concomitant]

REACTIONS (2)
  - CARDIAC DISORDER [None]
  - MIGRAINE [None]
